FAERS Safety Report 19816358 (Version 1)
Quarter: 2021Q3

REPORT INFORMATION
  Report Type: Report from Study
  Country: None (occurrence: US)
  Receive Date: 20210909
  Receipt Date: 20210909
  Transmission Date: 20211014
  Serious: Yes (Death, Hospitalization)
  Sender: FDA-Public Use
  Company Number: US-ABBVIE-21P-163-4060810-00

PATIENT
  Age: 60 Year
  Sex: Male

DRUGS (9)
  1. HYDROCHLORZIDE [Concomitant]
     Active Substance: HYDROCHLOROTHIAZIDE
     Indication: HYPERTENSION
     Dates: start: 20190711
  2. REMERON [Concomitant]
     Active Substance: MIRTAZAPINE
     Indication: DEPRESSION
     Dates: start: 20191204
  3. LISINOPRIL. [Concomitant]
     Active Substance: LISINOPRIL
     Indication: HYPERTENSION
     Route: 048
     Dates: start: 20191204
  4. QUETIAPINE. [Concomitant]
     Active Substance: QUETIAPINE
     Indication: PRODUCT USED FOR UNKNOWN INDICATION
     Route: 048
     Dates: start: 20210624
  5. BENDAMUSTINE [Concomitant]
     Active Substance: BENDAMUSTINE
     Indication: FOLLICULAR LYMPHOMA
     Dosage: MOST RECENT DOSE OF BENDAMUSTINE (180 MG) ON 05/DEC/2019 CYCLE 6 (C 6)
     Route: 042
     Dates: start: 20190711
  6. ZOVIRAX [Concomitant]
     Active Substance: ACYCLOVIR
     Indication: VIRAL INFECTION
     Dates: start: 20191025
  7. VENETOCLAX. [Suspect]
     Active Substance: VENETOCLAX
     Indication: FOLLICULAR LYMPHOMA
     Dosage: MOST RECENT DOSE OF VENETOCLAX ON 24/AUG/2021 CYCLE 19 (C 19)
     Route: 048
     Dates: start: 20190807
  8. OBINUTUZUMAB. [Concomitant]
     Active Substance: OBINUTUZUMAB
     Indication: FOLLICULAR LYMPHOMA
     Dosage: MOST RECENT DOSE OF OBINUTUZUMAB ON 18/AUG/2021 CYCLE 19 (C 19)
     Route: 042
     Dates: start: 20190711
  9. PERCOCET(PARACETAMOL, OXYCODONE HYDROCHLORIDE) [Concomitant]
     Indication: PAIN
     Dosage: DOSE; 10/325 QD PRN
     Route: 048
     Dates: start: 20210125

REACTIONS (1)
  - Myocarditis [Fatal]

NARRATIVE: CASE EVENT DATE: 20210824
